FAERS Safety Report 5056103-4 (Version None)
Quarter: 2006Q3

REPORT INFORMATION
  Report Type: 
  Country: None (occurrence: None)
  Receive Date: 20060720
  Receipt Date: 20060713
  Transmission Date: 20061208
  Serious: Yes (Other)
  Sender: FDA-Public Use
  Company Number: US-MERCK-0607USA02956

PATIENT
  Age: 73 Year
  Sex: Female

DRUGS (3)
  1. FOSAMAX [Suspect]
     Route: 048
  2. CORTICOSTEROIDS (UNSPECIFIED) [Concomitant]
     Route: 065
  3. PANOREX [Concomitant]
     Route: 065

REACTIONS (2)
  - LIP AND/OR ORAL CAVITY CANCER [None]
  - SQUAMOUS CELL CARCINOMA [None]
